FAERS Safety Report 5851778-1 (Version None)
Quarter: 2008Q3

REPORT INFORMATION
  Report Type: 
  Country: None (occurrence: None)
  Receive Date: 20080808
  Receipt Date: 20070820
  Transmission Date: 20090109
  Serious: Yes (Other)
  Sender: FDA-Public Use
  Company Number: SPV1-2007-03928

PATIENT
  Age: 59 Year
  Sex: Male

DRUGS (1)
  1. ETHMOZINE [Suspect]
     Indication: ATRIAL FIBRILLATION
     Dosage: 500 MG DAILY : 750 MG DAILY
     Dates: start: 20050101

REACTIONS (3)
  - ATRIAL FIBRILLATION [None]
  - DRUG INEFFECTIVE FOR UNAPPROVED INDICATION [None]
  - OFF LABEL USE [None]
